FAERS Safety Report 18656929 (Version 1)
Quarter: 2020Q4

REPORT INFORMATION
  Report Type: Spontaneous
  Country: TH (occurrence: TH)
  Receive Date: 20201224
  Receipt Date: 20201224
  Transmission Date: 20210114
  Serious: No
  Sender: FDA-Public Use
  Company Number: TH-LUPIN PHARMACEUTICALS INC.-2020-10641

PATIENT
  Age: 33 Year
  Sex: Female

DRUGS (6)
  1. AMOXICILLIN. [Suspect]
     Active Substance: AMOXICILLIN
     Indication: FUSOBACTERIUM INFECTION
  2. AMOXICILLIN. [Suspect]
     Active Substance: AMOXICILLIN
     Indication: ACTINOMYCOSIS
     Dosage: UNK-FIRST IT WAS GIVEN FOR 6 MONTHS AND THEN IT WAS PROLONGED FURTHER
     Route: 048
  3. CEFTRIAXONE. [Suspect]
     Active Substance: CEFTRIAXONE
     Indication: FUSOBACTERIUM INFECTION
  4. METRONIDAZOLE. [Suspect]
     Active Substance: METRONIDAZOLE
     Indication: ACTINOMYCOSIS
     Dosage: UNK
     Route: 065
  5. CEFTRIAXONE. [Suspect]
     Active Substance: CEFTRIAXONE
     Indication: ACTINOMYCOSIS
     Dosage: UNK
     Route: 042
  6. METRONIDAZOLE. [Suspect]
     Active Substance: METRONIDAZOLE
     Indication: FUSOBACTERIUM INFECTION
     Dosage: UNK
     Route: 042

REACTIONS (2)
  - Maternal exposure during pregnancy [Unknown]
  - Normal newborn [Unknown]
